FAERS Safety Report 10402070 (Version 1)
Quarter: 2014Q1

REPORT INFORMATION
  Report Type: Spontaneous
  Country: US (occurrence: None)
  Receive Date: 20130815
  Receipt Date: 20130815
  Transmission Date: 20141002
  Serious: Yes (Other)
  Sender: FDA-Public Use
  Company Number: ADR-2012-02017

PATIENT
  Sex: Female

DRUGS (2)
  1. BACLOFEN INTRATHECAL (BACLOFEN INJECTION) 1000 MCG/ML [Suspect]
     Indication: PAIN
  2. FENTANYL [Concomitant]

REACTIONS (2)
  - Weight decreased [None]
  - Implant site pain [None]
